FAERS Safety Report 26002302 (Version 1)
Quarter: 2025Q4

REPORT INFORMATION
  Report Type: Spontaneous
  Country: US (occurrence: US)
  Receive Date: 20251105
  Receipt Date: 20251105
  Transmission Date: 20260117
  Serious: No
  Sender: CURRAX PHARMACEUTICALS
  Company Number: US-CURRAX PHARMACEUTICALS LLC-US-2025CUR000961

PATIENT
  Sex: Male

DRUGS (1)
  1. CONTRAVE [Suspect]
     Active Substance: BUPROPION HYDROCHLORIDE\NALTREXONE HYDROCHLORIDE
     Indication: Product used for unknown indication
     Dosage: STRENGTH: 8/90 MG, ONE TABLET DAILY FOR SEVEN DAYS
     Route: 065

REACTIONS (7)
  - Brain fog [Unknown]
  - Impaired work ability [Unknown]
  - Dizziness [Unknown]
  - Malaise [Unknown]
  - Headache [Unknown]
  - Mental impairment [Unknown]
  - Labelled drug-food interaction issue [Unknown]
